FAERS Safety Report 15468748 (Version 1)
Quarter: 2018Q4

REPORT INFORMATION
  Report Type: Report from Study
  Country: PT (occurrence: PT)
  Receive Date: 20181005
  Receipt Date: 20181005
  Transmission Date: 20190204
  Serious: Yes (Other)
  Sender: FDA-Public Use
  Company Number: PT-JNJFOC-20181004145

PATIENT
  Age: 70 Year
  Sex: Male

DRUGS (1)
  1. SIMPONI [Suspect]
     Active Substance: GOLIMUMAB
     Indication: RHEUMATOID ARTHRITIS
     Dosage: 50 MG/0.5 ML
     Route: 058
     Dates: start: 20120505

REACTIONS (4)
  - Off label use [Unknown]
  - Wound infection [Recovering/Resolving]
  - Product use issue [Unknown]
  - Scratch [Recovering/Resolving]

NARRATIVE: CASE EVENT DATE: 20120505
